FAERS Safety Report 19493172 (Version 9)
Quarter: 2023Q4

REPORT INFORMATION
  Report Type: Report from Study
  Country: AT (occurrence: AT)
  Receive Date: 20210705
  Receipt Date: 20231214
  Transmission Date: 20240109
  Serious: Yes (Other)
  Sender: FDA-Public Use
  Company Number: AT-ABBVIE-21K-009-3975590-00

PATIENT
  Age: 64 Year
  Sex: Male

DRUGS (19)
  1. SKYRIZI [Suspect]
     Active Substance: RISANKIZUMAB-RZAA
     Indication: Psoriasis
     Route: 058
     Dates: start: 201910
  2. SKYRIZI [Suspect]
     Active Substance: RISANKIZUMAB-RZAA
     Route: 058
     Dates: start: 20191016, end: 20210928
  3. SKYRIZI [Suspect]
     Active Substance: RISANKIZUMAB-RZAA
     Route: 058
     Dates: start: 20220510
  4. SKYRIZI [Suspect]
     Active Substance: RISANKIZUMAB-RZAA
     Route: 058
     Dates: start: 20210928, end: 20220510
  5. ALLOPURINOL [Concomitant]
     Active Substance: ALLOPURINOL
     Indication: Hyperuricaemia
     Dosage: 300.00 MILLIGRAM
     Route: 048
     Dates: start: 20161001, end: 20210430
  6. ALLOPURINOL [Concomitant]
     Active Substance: ALLOPURINOL
     Indication: Hyperuricaemia
     Dosage: 100.00 MILLIGRAM
     Route: 048
     Dates: start: 20210501
  7. CANDESARTAN [Concomitant]
     Active Substance: CANDESARTAN
     Indication: Hypertension
     Dosage: 16 MILLIGRAM
     Route: 048
     Dates: start: 20161001
  8. Hydrochlorothiazide sar [Concomitant]
     Indication: Hypertension
     Dosage: 12.5 MILLIGRAM
     Route: 048
     Dates: start: 20161001
  9. ESOMEPRAZOLE [Concomitant]
     Active Substance: ESOMEPRAZOLE
     Indication: Gastrointestinal disorder
     Dosage: 20.00 MILLIGRAM
     Route: 048
     Dates: start: 20161001, end: 20201004
  10. CHOLECALCIFEROL [Concomitant]
     Active Substance: CHOLECALCIFEROL
     Indication: Vitamin D decreased
     Dosage: 50.00 DROP, FREQUENCY TEXT: TWICE WEEKLY
     Route: 048
     Dates: start: 20161016, end: 20200701
  11. CHOLECALCIFEROL [Concomitant]
     Active Substance: CHOLECALCIFEROL
     Indication: Vitamin D decreased
     Route: 048
     Dates: start: 20221117
  12. CHOLECALCIFEROL [Concomitant]
     Active Substance: CHOLECALCIFEROL
     Indication: Vitamin D decreased
     Dosage: FREQUENCY TEXT: TWICE PER WEEK
     Route: 048
     Dates: start: 20220118, end: 20220308
  13. CHOLECALCIFEROL [Concomitant]
     Active Substance: CHOLECALCIFEROL
     Indication: Vitamin D decreased
     Route: 048
     Dates: start: 20220308, end: 20220614
  14. TRETINOINE DCI [Concomitant]
     Indication: Actinic keratosis
     Dosage: 1 APPLICATION
     Route: 061
     Dates: start: 20161016, end: 20210317
  15. PANTOPRAZOLE SODIUM [Concomitant]
     Active Substance: PANTOPRAZOLE SODIUM
     Indication: Gastrooesophageal reflux disease
     Dosage: 20.00 MILLIGRAM
     Route: 048
     Dates: start: 20201005
  16. TAMSULOSIN [Concomitant]
     Active Substance: TAMSULOSIN
     Indication: Prostatitis
     Route: 048
     Dates: start: 20211214, end: 20220115
  17. LEVOFLOXACIN [Concomitant]
     Active Substance: LEVOFLOXACIN
     Indication: Prostatitis
     Dates: start: 20211215, end: 20211227
  18. IVERMECTIN [Concomitant]
     Active Substance: IVERMECTIN
     Indication: Rhinophyma
     Dosage: 1 APPLICATION
     Route: 061
     Dates: start: 20210928, end: 20220118
  19. IMIQUIMOD [Concomitant]
     Active Substance: IMIQUIMOD
     Indication: Basal cell carcinoma
     Dosage: 1 APPLICATION, FREQUENCY TEXT: ON 5 CONSECUTIVE DAYS
     Route: 061
     Dates: start: 20220902, end: 20221014

REACTIONS (15)
  - Basal cell carcinoma [Not Recovered/Not Resolved]
  - Infection [Recovered/Resolved]
  - Oropharyngeal pain [Recovered/Resolved]
  - Bowen^s disease [Recovered/Resolved]
  - Micturition urgency [Recovered/Resolved]
  - Prostatitis [Recovered/Resolved]
  - Vitamin D decreased [Not Recovered/Not Resolved]
  - Rhinophyma [Not Recovered/Not Resolved]
  - Chills [Recovered/Resolved]
  - Fatigue [Recovered/Resolved]
  - Pyrexia [Recovered/Resolved]
  - COVID-19 [Recovered/Resolved]
  - Cough [Recovered/Resolved]
  - Rhinorrhoea [Recovered/Resolved]
  - Pyrexia [Recovered/Resolved]

NARRATIVE: CASE EVENT DATE: 20210103
